FAERS Safety Report 22284733 (Version 1)
Quarter: 2023Q2

REPORT INFORMATION
  Report Type: Spontaneous
  Country: JP (occurrence: JP)
  Receive Date: 20230504
  Receipt Date: 20230504
  Transmission Date: 20230722
  Serious: Yes (Death, Other)
  Sender: FDA-Public Use
  Company Number: JP-TAKEDA-2023TUS043779

PATIENT
  Sex: Male

DRUGS (1)
  1. LIALDA [Suspect]
     Active Substance: MESALAMINE
     Indication: Colitis ulcerative
     Route: 048

REACTIONS (5)
  - Oedema [Fatal]
  - Jaundice [Fatal]
  - Renal impairment [Fatal]
  - Liver function test abnormal [Fatal]
  - Wrong technique in product usage process [Unknown]
